FAERS Safety Report 8878624 (Version 1)
Quarter: 2012Q4

REPORT INFORMATION
  Report Type: 
  Country: US (occurrence: US)
  Receive Date: 20121030
  Receipt Date: 20121030
  Transmission Date: 20130627
  Serious: Yes (Other)
  Sender: FDA-Public Use
  Company Number: US-AMGEN-USASP2012068246

PATIENT
  Age: 26 Year
  Sex: Male

DRUGS (2)
  1. ENBREL [Suspect]
     Indication: PRODUCT USED FOR UNKNOWN INDICATION
     Dosage: UNK
     Dates: start: 2007, end: 2010
  2. HUMIRA [Concomitant]
     Dosage: 40 mg, UNK
     Dates: start: 2010

REACTIONS (5)
  - IgA nephropathy [Unknown]
  - Protein urine present [Unknown]
  - Blood creatinine increased [Unknown]
  - Colitis [Unknown]
  - Iritis [Unknown]
